FAERS Safety Report 24745468 (Version 1)
Quarter: 2024Q4

REPORT INFORMATION
  Report Type: Spontaneous
  Country: JP (occurrence: JP)
  Receive Date: 20241217
  Receipt Date: 20241217
  Transmission Date: 20250114
  Serious: Yes (Hospitalization, Other)
  Sender: BOEHRINGER INGELHEIM
  Company Number: JP-TAKEDA-2023TUS016316

PATIENT
  Age: 43 Year
  Sex: Female
  Weight: 66.6 kg

DRUGS (48)
  1. JARDIANCE [Suspect]
     Active Substance: EMPAGLIFLOZIN
     Indication: Type 2 diabetes mellitus
     Route: 048
     Dates: start: 20230128, end: 20230129
  2. JARDIANCE [Suspect]
     Active Substance: EMPAGLIFLOZIN
     Dates: start: 20230203, end: 20230204
  3. DIHYDROERGOCRISTINE MESYLATE [Suspect]
     Active Substance: DIHYDROERGOCRISTINE MESYLATE
     Indication: Insomnia
     Route: 048
     Dates: start: 20230128
  4. METGLUCO [Suspect]
     Active Substance: METFORMIN HYDROCHLORIDE
     Indication: Type 2 diabetes mellitus
     Route: 048
     Dates: start: 20230128, end: 20230131
  5. METGLUCO [Suspect]
     Active Substance: METFORMIN HYDROCHLORIDE
     Route: 048
     Dates: start: 20230202, end: 20230202
  6. METGLUCO [Suspect]
     Active Substance: METFORMIN HYDROCHLORIDE
     Route: 048
     Dates: start: 20230203
  7. METGLUCO [Suspect]
     Active Substance: METFORMIN HYDROCHLORIDE
     Dates: end: 20230202
  8. EFFEXOR [Suspect]
     Active Substance: VENLAFAXINE HYDROCHLORIDE
     Indication: Depression
     Route: 048
     Dates: start: 20230128
  9. RYBELSUS [Suspect]
     Active Substance: SEMAGLUTIDE
     Indication: Type 2 diabetes mellitus
     Dates: start: 20230128
  10. LEVOMEPROMAZINE [Suspect]
     Active Substance: LEVOMEPROMAZINE
     Indication: Insomnia
     Route: 048
  11. SULPIRIDE [Suspect]
     Active Substance: SULPIRIDE
     Indication: Depression
     Dates: start: 20230128, end: 20230205
  12. FEXOFENADINE [Suspect]
     Active Substance: FEXOFENADINE HYDROCHLORIDE
     Indication: Urticaria
     Dates: start: 20230128, end: 20230205
  13. METFORMIN HYDROCHLORIDE [Suspect]
     Active Substance: METFORMIN HYDROCHLORIDE
     Indication: Type 2 diabetes mellitus
     Route: 048
     Dates: start: 20230203, end: 20230204
  14. METFORMIN HYDROCHLORIDE [Suspect]
     Active Substance: METFORMIN HYDROCHLORIDE
     Dosage: 375 MILLIGRAM, QD
     Dates: start: 20220203, end: 20220204
  15. AMITIZA [Suspect]
     Active Substance: LUBIPROSTONE
     Indication: Constipation
     Dates: start: 20230128, end: 20230205
  16. VONOPRAZAN FUMARATE [Suspect]
     Active Substance: VONOPRAZAN FUMARATE
     Indication: Gastrooesophageal reflux disease
     Dates: start: 20230128, end: 20230205
  17. FLUNITRAZEPAM [Suspect]
     Active Substance: FLUNITRAZEPAM
     Indication: Depression
     Dates: start: 20230128, end: 20230204
  18. ACETAMINOPHEN\TRAMADOL HYDROCHLORIDE [Suspect]
     Active Substance: ACETAMINOPHEN\TRAMADOL HYDROCHLORIDE
     Indication: Depression
     Dates: start: 20230128, end: 20230205
  19. ACETAMINOPHEN\TRAMADOL HYDROCHLORIDE [Suspect]
     Active Substance: ACETAMINOPHEN\TRAMADOL HYDROCHLORIDE
     Dosage: TOARASET COMBINATION TABLETS ^DSEP
     Route: 048
  20. ARIPIPRAZOLE [Suspect]
     Active Substance: ARIPIPRAZOLE
     Indication: Product used for unknown indication
     Dates: start: 20230203, end: 20230205
  21. ATORVASTATIN CALCIUM TRIHYDRATE [Suspect]
     Active Substance: ATORVASTATIN CALCIUM TRIHYDRATE
     Indication: Hyperlipidaemia
     Dates: start: 20230128, end: 20230205
  22. IMEGLIMIN [Suspect]
     Active Substance: IMEGLIMIN
     Indication: Product used for unknown indication
  23. ESTAZOLAM [Suspect]
     Active Substance: ESTAZOLAM
     Indication: Product used for unknown indication
     Dates: start: 20230203, end: 20230205
  24. RAMELTEON [Suspect]
     Active Substance: RAMELTEON
     Indication: Product used for unknown indication
     Dates: start: 20220203, end: 20230205
  25. IMEGLIMIN HYDROCHLORIDE [Concomitant]
     Active Substance: IMEGLIMIN HYDROCHLORIDE
     Indication: Type 2 diabetes mellitus
     Dates: start: 20230128, end: 20230204
  26. IMEGLIMIN HYDROCHLORIDE [Concomitant]
     Active Substance: IMEGLIMIN HYDROCHLORIDE
     Route: 048
     Dates: start: 20230202, end: 20230204
  27. IMEGLIMIN HYDROCHLORIDE [Concomitant]
     Active Substance: IMEGLIMIN HYDROCHLORIDE
     Route: 048
     Dates: start: 20230203
  28. ATORVASTATIN [Concomitant]
     Active Substance: ATORVASTATIN
     Indication: Hyperlipidaemia
     Route: 048
     Dates: start: 20230128
  29. ROZEREM [Concomitant]
     Active Substance: RAMELTEON
     Indication: Insomnia
     Route: 048
  30. ROZEREM [Concomitant]
     Active Substance: RAMELTEON
     Dates: start: 20230128
  31. DISTIGMINE BROMIDE [Concomitant]
     Active Substance: DISTIGMINE BROMIDE
     Indication: Neurogenic bladder
     Dosage: 5 MILLIGRAM, QD
     Dates: start: 20230128, end: 20230205
  32. ABILIFY [Concomitant]
     Active Substance: ARIPIPRAZOLE
     Indication: Depression
     Dosage: 3 MILLIGRAM, QD (EVENING)
     Dates: start: 20230128
  33. CHLORPROMAZINE HIBENZATE [Concomitant]
     Active Substance: CHLORPROMAZINE HIBENZATE
     Indication: Depression
     Dosage: SUGAR-COATED TABLETS
     Route: 048
     Dates: start: 20230128
  34. LORATADINE [Concomitant]
     Active Substance: LORATADINE
     Indication: Urticaria
     Dosage: LORATADINE OD
     Route: 048
     Dates: start: 20230128
  35. TIZANIDINE [Concomitant]
     Active Substance: TIZANIDINE
     Indication: Headache
     Dosage: 1 MILLIGRAM, QD (BEFORE BED)
     Route: 048
     Dates: start: 20230128, end: 20230206
  36. TELMISARTAN [Concomitant]
     Active Substance: TELMISARTAN
     Indication: Hypertension
     Dosage: 40 MILLIGRAM, QD
     Dates: start: 20230128, end: 20230205
  37. SULPIRIDE [Concomitant]
     Active Substance: SULPIRIDE
     Indication: Depression
     Dates: start: 20230128, end: 20230202
  38. CLARITIN [Concomitant]
     Active Substance: LORATADINE
     Indication: Product used for unknown indication
     Route: 048
  39. DULOXETINE [Concomitant]
     Active Substance: DULOXETINE
     Indication: Product used for unknown indication
     Route: 048
  40. BROTIZOLAM [Concomitant]
     Active Substance: BROTIZOLAM
     Indication: Product used for unknown indication
     Route: 048
  41. ANHIBA [Concomitant]
     Active Substance: ACETAMINOPHEN
     Indication: Product used for unknown indication
     Route: 061
  42. LOXOPROFEN SODIUM [Concomitant]
     Active Substance: LOXOPROFEN SODIUM
     Indication: Product used for unknown indication
     Route: 065
  43. LOXOPROFEN SODIUM [Concomitant]
     Active Substance: LOXOPROFEN SODIUM
     Dosage: 10 MILLIGRAM, QD
  44. BISACODYL [Concomitant]
     Active Substance: BISACODYL
     Indication: Product used for unknown indication
     Dosage: 10 MILLIGRAM
     Dates: start: 20220204, end: 20220204
  45. EFFEXOR XR [Concomitant]
     Active Substance: VENLAFAXINE HYDROCHLORIDE
     Indication: Depression
     Dates: start: 20230128
  46. FEXOFENADINE HYDROCHLORIDE [Concomitant]
     Active Substance: FEXOFENADINE HYDROCHLORIDE
     Indication: Urticaria
     Dates: start: 20230128
  47. ESTAZOLAM [Concomitant]
     Active Substance: ESTAZOLAM
     Indication: Insomnia
     Dates: start: 20230128
  48. SENNOSIDES [Concomitant]
     Active Substance: SENNOSIDES
     Indication: Constipation
     Dosage: 24 MILLIGRAM
     Dates: start: 20230203, end: 20230205

REACTIONS (10)
  - Altered state of consciousness [Recovered/Resolved]
  - Lactic acidosis [Recovered/Resolved]
  - Diabetic ketoacidosis [Recovered/Resolved]
  - Urinary tract infection [Recovering/Resolving]
  - Escherichia urinary tract infection [Recovering/Resolving]
  - Dehydration [Unknown]
  - Water intoxication [Unknown]
  - Decreased appetite [Unknown]
  - Blood glucose increased [Unknown]
  - Pyrexia [Unknown]

NARRATIVE: CASE EVENT DATE: 20230204
